FAERS Safety Report 7646965-6 (Version None)
Quarter: 2011Q3

REPORT INFORMATION
  Report Type: 
  Country: None (occurrence: None)
  Receive Date: 20110729
  Receipt Date: 20110729
  Transmission Date: 20111222
  Serious: Yes (Disabling, Other)
  Sender: FDA-Public Use
  Company Number: None

PATIENT
  Sex: Female
  Weight: 74.8435 kg

DRUGS (1)
  1. CYANOCOBALAMIN [Suspect]
     Indication: HYPOAESTHESIA
     Dosage: 1 PILL 2/DY ORAL
     Route: 048
     Dates: start: 20110616, end: 20110618

REACTIONS (5)
  - CONTUSION [None]
  - PAPULE [None]
  - BLISTER [None]
  - PAIN IN EXTREMITY [None]
  - OEDEMA PERIPHERAL [None]
